FAERS Safety Report 5525362-3 (Version None)
Quarter: 2007Q4

REPORT INFORMATION
  Report Type: 
  Country: None (occurrence: None)
  Receive Date: 20071120
  Receipt Date: 20071105
  Transmission Date: 20080405
  Serious: Yes (Other)
  Sender: FDA-Public Use
  Company Number: DSA_30659_2007

PATIENT
  Sex: Female

DRUGS (5)
  1. CARDIZEM [Suspect]
     Indication: BLOOD PRESSURE
     Dosage: DF
     Dates: start: 19800101
  2. CARDIZEM [Suspect]
     Indication: CHEST PAIN
     Dosage: DF
     Dates: start: 19800101
  3. ENALAPRIL [Suspect]
     Indication: BLOOD PRESSURE
     Dosage: DF
     Dates: start: 20060101
  4. HYDRALAZINE HCL [Suspect]
     Indication: BLOOD PRESSURE
     Dosage: DF
     Dates: start: 20070601, end: 20070901
  5. CLONIDINE [Suspect]
     Indication: DRUG USE FOR UNKNOWN INDICATION
     Dosage: DF
     Dates: start: 19980101

REACTIONS (2)
  - BLOOD PRESSURE INCREASED [None]
  - POLYURIA [None]
